FAERS Safety Report 9971624 (Version 1)
Quarter: 2014Q1

REPORT INFORMATION
  Report Type: Spontaneous
  Country: US (occurrence: None)
  Receive Date: 20140127
  Receipt Date: 20140127
  Transmission Date: 20141002
  Serious: Yes (Hospitalization)
  Sender: FDA-Public Use
  Company Number: 1210982

PATIENT
  Age: 37 Year
  Sex: Male

DRUGS (9)
  1. ACTILYSE [Suspect]
     Indication: THROMBOSIS
     Dosage: 1 MG/KG (OVER 8 HOURS), UNKNOWN
  2. DAPSONE (DAPSONE) [Concomitant]
  3. ACYCLOVIR (ACICLOVIR) (ACICLOVIR) [Concomitant]
  4. AZITHROMYCIN (AZITHROMYCIN) [Concomitant]
  5. STAVUDINE (STAVUDINE) [Concomitant]
  6. MEGESTROL (MEGESTROL ACETATE) [Concomitant]
  7. FLUCONAZOLE (FLUCONAZOLE) [Concomitant]
  8. HEPARIN (HEPARIN SODIUM) [Concomitant]
  9. AMLODIPINE (AMLODIPINE) [Concomitant]

REACTIONS (1)
  - Haematoma [None]
